FAERS Safety Report 6752386-0 (Version None)
Quarter: 2010Q2

REPORT INFORMATION
  Report Type: 
  Country: None (occurrence: None)
  Receive Date: 20100602
  Receipt Date: 20100525
  Transmission Date: 20101027
  Serious: Yes (Other)
  Sender: FDA-Public Use
  Company Number: US-MPIJNJ-2010-02405

PATIENT
  Sex: Female

DRUGS (2)
  1. VELCADE [Suspect]
     Indication: NEOPLASM
     Dosage: UNK
  2. GEMCITABINE HCL [Suspect]
     Indication: NEOPLASM
     Dosage: UNK

REACTIONS (1)
  - NEUTROPHIL COUNT DECREASED [None]
